FAERS Safety Report 7153905-5 (Version None)
Quarter: 2010Q4

REPORT INFORMATION
  Report Type: 
  Country: None (occurrence: None)
  Receive Date: 20101213
  Receipt Date: 20101022
  Transmission Date: 20110411
  Serious: No
  Sender: FDA-Public Use
  Company Number: US-ABBOTT-10P-163-0680392-00

PATIENT
  Sex: Male
  Weight: 122.58 kg

DRUGS (1)
  1. MERIDIA [Suspect]
     Indication: WEIGHT DECREASED
     Dosage: DAILY, DOSING UNKNOWN PER THE CONSUMER
     Dates: start: 20100901, end: 20101001

REACTIONS (1)
  - BLOOD PRESSURE INCREASED [None]
